FAERS Safety Report 4760895-9 (Version None)
Quarter: 2005Q3

REPORT INFORMATION
  Report Type: 
  Country: None (occurrence: None)
  Receive Date: 20050901
  Receipt Date: 20050824
  Transmission Date: 20060218
  Serious: Yes (Other)
  Sender: FDA-Public Use
  Company Number: 2005119826

PATIENT
  Sex: Male
  Weight: 63.5036 kg

DRUGS (2)
  1. VIAGRA [Suspect]
     Indication: ERECTILE DYSFUNCTION
     Dosage: (50 MG, PRN), ORAL
     Route: 048
  2. VITAMIN A (NATURAL) CAP [Concomitant]

REACTIONS (4)
  - BLOOD PRESSURE INCREASED [None]
  - DISEASE PROGRESSION [None]
  - RETINITIS PIGMENTOSA [None]
  - VISUAL ACUITY REDUCED [None]
